FAERS Safety Report 16120294 (Version 3)
Quarter: 2021Q2

REPORT INFORMATION
  Report Type: Spontaneous
  Country: JP (occurrence: JP)
  Receive Date: 20190326
  Receipt Date: 20210630
  Transmission Date: 20210716
  Serious: Yes (Other)
  Sender: FDA-Public Use
  Company Number: JP-SEATTLE GENETICS-2019SGN00857

PATIENT
  Age: 66 Year
  Sex: Male
  Weight: 55.4 kg

DRUGS (7)
  1. ADCETRIS [Suspect]
     Active Substance: BRENTUXIMAB VEDOTIN
     Indication: HODGKIN^S DISEASE
     Dosage: 50 MILLIGRAM, Q2WEEKS
     Route: 041
     Dates: start: 20190121, end: 20190121
  2. DOXORUBICIN [Suspect]
     Active Substance: DOXORUBICIN
     Dosage: UNK
     Route: 041
     Dates: start: 20190305
  3. DOXORUBICIN [Suspect]
     Active Substance: DOXORUBICIN
     Indication: HODGKIN^S DISEASE
     Dosage: 40 MILLIGRAM
     Route: 041
     Dates: start: 20190121, end: 20190205
  4. EXAL [Concomitant]
     Indication: HODGKIN^S DISEASE
     Dosage: 8 MILLIGRAM
     Route: 041
     Dates: start: 20190121
  5. DOXORUBICIN [Suspect]
     Active Substance: DOXORUBICIN
     Dosage: 50 MILLIGRAM
     Route: 041
     Dates: start: 20190219, end: 20190219
  6. DACARBAZINE. [Concomitant]
     Active Substance: DACARBAZINE
     Indication: HODGKIN^S DISEASE
     Dosage: 500 MILLIGRAM
     Route: 041
     Dates: start: 20190121
  7. ADCETRIS [Suspect]
     Active Substance: BRENTUXIMAB VEDOTIN
     Dosage: 70 MILLIGRAM, Q2WEEKS
     Route: 041
     Dates: start: 20190205

REACTIONS (2)
  - Pancytopenia [Recovering/Resolving]
  - Neuropathy peripheral [Not Recovered/Not Resolved]

NARRATIVE: CASE EVENT DATE: 20190222
